FAERS Safety Report 5452851-2 (Version None)
Quarter: 2007Q3

REPORT INFORMATION
  Report Type: 
  Country: None (occurrence: None)
  Receive Date: 20070914
  Receipt Date: 20070903
  Transmission Date: 20080115
  Serious: Yes (Hospitalization)
  Sender: FDA-Public Use
  Company Number: JP-ROCHE-514067

PATIENT
  Age: 5 Year
  Sex: Female
  Weight: 22.8 kg

DRUGS (18)
  1. ROCEPHIN [Suspect]
     Route: 041
     Dates: start: 20060617, end: 20060617
  2. ROCEPHIN [Suspect]
     Route: 041
     Dates: start: 20070730, end: 20070730
  3. ROCEPHIN [Suspect]
     Route: 041
     Dates: start: 20031030, end: 20031103
  4. ROCEPHIN [Suspect]
     Route: 041
     Dates: start: 20031117, end: 20031119
  5. ROCEPHIN [Suspect]
     Route: 041
     Dates: start: 20031222, end: 20031229
  6. ROCEPHIN [Suspect]
     Route: 041
     Dates: start: 20040304, end: 20040305
  7. ROCEPHIN [Suspect]
     Route: 041
     Dates: start: 20041203, end: 20041203
  8. THEO-DUR [Concomitant]
     Dosage: TRADE NAME REPORTED AS THEODUR G.
     Route: 048
     Dates: start: 20040801, end: 20070101
  9. MUCOSAL [Concomitant]
     Route: 048
     Dates: start: 20040801, end: 20070101
  10. SPIROPENT [Concomitant]
     Route: 048
     Dates: start: 20040801, end: 20070101
  11. EBASTEL [Concomitant]
     Route: 048
     Dates: start: 20040801, end: 20070101
  12. SOLITA-T3 [Concomitant]
     Dates: start: 20060617, end: 20060617
  13. SOLITA-T3 [Concomitant]
     Dates: start: 20070730, end: 20070730
  14. NEOPHYLLIN [Concomitant]
     Dates: start: 20060617, end: 20060617
  15. NEOPHYLLIN [Concomitant]
     Dates: start: 20070730, end: 20070730
  16. SAXIZON [Concomitant]
     Dates: start: 20060617, end: 20060617
  17. SAXIZON [Concomitant]
     Dates: start: 20070730, end: 20070730
  18. EGG [Suspect]
     Indication: DRUG USE FOR UNKNOWN INDICATION
     Dosage: ON 17 JUNE 2006, AT 11:00 THE PATIENT ATE AN EGG SANDWICH.
     Route: 065

REACTIONS (2)
  - ANAPHYLACTIC REACTION [None]
  - ANAPHYLACTIC SHOCK [None]
